FAERS Safety Report 5982899-0 (Version None)
Quarter: 2008Q4

REPORT INFORMATION
  Report Type: 
  Country: None (occurrence: None)
  Receive Date: 20081205
  Receipt Date: 20081205
  Transmission Date: 20090506
  Serious: Yes (Hospitalization)
  Sender: FDA-Public Use
  Company Number: None

PATIENT
  Age: 42 Year
  Sex: Male
  Weight: 136.0791 kg

DRUGS (1)
  1. TRAMADOL HCL [Suspect]
     Indication: PAIN
     Dosage: 50MG 6 HOURS PO
     Route: 048
     Dates: start: 20080702, end: 20080808

REACTIONS (4)
  - CONVULSION [None]
  - FACIAL BONES FRACTURE [None]
  - FALL [None]
  - LOSS OF CONSCIOUSNESS [None]
